FAERS Safety Report 4320640-8 (Version None)
Quarter: 2004Q1

REPORT INFORMATION
  Report Type: 
  Country: None (occurrence: None)
  Receive Date: 20040319
  Receipt Date: 20040319
  Transmission Date: 20041129
  Serious: No
  Sender: FDA-Public Use
  Company Number: None

PATIENT
  Age: 50 Year
  Sex: Female
  Weight: 72.1219 kg

DRUGS (2)
  1. DURAGESIC [Suspect]
     Indication: BASEDOW'S DISEASE
     Dosage: Q3D
     Dates: start: 20040224, end: 20040227
  2. DURAGESIC [Suspect]
     Indication: ENCEPHALITIS
     Dosage: Q3D
     Dates: start: 20040224, end: 20040227

REACTIONS (3)
  - DIARRHOEA [None]
  - NAUSEA [None]
  - VOMITING [None]
